FAERS Safety Report 19277330 (Version 1)
Quarter: 2021Q2

REPORT INFORMATION
  Report Type: Report from Study
  Country: None (occurrence: US)
  Receive Date: 20210519
  Receipt Date: 20210519
  Transmission Date: 20210717
  Serious: Yes (Hospitalization, Other)
  Sender: FDA-Public Use
  Company Number: US-ABBVIE-21K-163-3899764-00

PATIENT
  Age: 40 Year
  Sex: Female

DRUGS (5)
  1. PFIZER?BIONTECH COVID?19 VACCINE [Suspect]
     Active Substance: TOZINAMERAN
     Indication: COVID-19 IMMUNISATION
     Dosage: PFIZER?BIONTECH
     Route: 030
  2. PFIZER?BIONTECH COVID?19 VACCINE [Suspect]
     Active Substance: TOZINAMERAN
     Dosage: SECOND DOSE PFIZER?BIONTECH
     Route: 030
     Dates: start: 20210226, end: 20210226
  3. 5?HTP [Concomitant]
     Indication: SUPPLEMENTATION THERAPY
  4. SKYRIZI [Suspect]
     Active Substance: RISANKIZUMAB-RZAA
     Indication: PSORIASIS
     Route: 058
     Dates: start: 2019
  5. FISH OIL [Concomitant]
     Active Substance: FISH OIL
     Indication: SUPPLEMENTATION THERAPY

REACTIONS (4)
  - High density lipoprotein increased [Not Recovered/Not Resolved]
  - Transient ischaemic attack [Recovered/Resolved]
  - Low density lipoprotein increased [Not Recovered/Not Resolved]
  - Plasminogen activator inhibitor type 1 deficiency [Not Recovered/Not Resolved]

NARRATIVE: CASE EVENT DATE: 202011
